FAERS Safety Report 23837112 (Version 1)
Quarter: 2024Q2

REPORT INFORMATION
  Report Type: Spontaneous
  Country: CA (occurrence: CA)
  Receive Date: 20240509
  Receipt Date: 20240509
  Transmission Date: 20240716
  Serious: Yes (Other)
  Sender: FDA-Public Use
  Company Number: CA-FreseniusKabi-FK202407414

PATIENT
  Age: 67 Year
  Sex: Female
  Weight: 95 kg

DRUGS (6)
  1. KETOROLAC [Suspect]
     Active Substance: KETOROLAC TROMETHAMINE
     Indication: Headache
     Dosage: DOSAGE FORM: LIQUID INTRAVENOUS?FREQUENCY: ONCE
     Route: 042
  2. BUDESONIDE [Concomitant]
     Active Substance: BUDESONIDE
     Indication: Product used for unknown indication
     Dosage: NOT SPECIFIED
  3. FLOVENT HFA [Concomitant]
     Active Substance: FLUTICASONE PROPIONATE
     Indication: Product used for unknown indication
     Dosage: METERED DOSE (AEROSOL)
  4. MAXERAN LIQ [Concomitant]
     Indication: Product used for unknown indication
     Dosage: LIQUID ORAL
  5. SYNTHROID [Concomitant]
     Active Substance: LEVOTHYROXINE SODIUM
     Indication: Product used for unknown indication
     Dosage: NOT SPECIFIED
  6. VENTOLIN [Concomitant]
     Active Substance: ALBUTEROL SULFATE
     Indication: Product used for unknown indication
     Dosage: NOT SPECIFIED
     Route: 055

REACTIONS (3)
  - Chest pain [Recovered/Resolved]
  - Bronchospasm [Recovered/Resolved]
  - Troponin increased [Recovered/Resolved]
